FAERS Safety Report 7513205-8 (Version None)
Quarter: 2011Q2

REPORT INFORMATION
  Report Type: 
  Country: None (occurrence: None)
  Receive Date: 20110531
  Receipt Date: 20110512
  Transmission Date: 20111010
  Serious: No
  Sender: FDA-Public Use
  Company Number: US-B.I. PHARMACEUTICALS,INC./RIDGEFIELD-2011-BP-12912BP

PATIENT
  Sex: Male

DRUGS (9)
  1. ASPIRIN [Concomitant]
     Dosage: 81 MG
  2. VASOTEC [Concomitant]
     Indication: PROPHYLAXIS
  3. CRESTOR [Concomitant]
  4. INSULIN [Concomitant]
     Indication: TYPE 1 DIABETES MELLITUS
  5. PRADAXA [Suspect]
     Indication: ATRIAL FIBRILLATION
     Dosage: 300 MG
     Route: 048
     Dates: start: 20110502
  6. PRADAXA [Suspect]
     Indication: COAGULOPATHY
  7. PLAVIX [Concomitant]
     Indication: STENT PLACEMENT
  8. LOPRESSOR [Concomitant]
  9. LASIX [Concomitant]

REACTIONS (3)
  - DYSPEPSIA [None]
  - FLATULENCE [None]
  - ERUCTATION [None]
